FAERS Safety Report 13449123 (Version 2)
Quarter: 2017Q2

REPORT INFORMATION
  Report Type: Spontaneous
  Country: US (occurrence: US)
  Receive Date: 20170417
  Receipt Date: 20170419
  Transmission Date: 20170830
  Serious: No
  Sender: FDA-Public Use
  Company Number: US-PFIZER INC-2017166382

PATIENT
  Age: 73 Year
  Sex: Female
  Weight: 68.27 kg

DRUGS (2)
  1. CARBIDOPA/LEVODOPA [Concomitant]
     Dosage: 25/100
  2. NEURONTIN [Suspect]
     Active Substance: GABAPENTIN
     Dosage: UNK (DURING THE DAY TIME AND AT NIGHT TIME)

REACTIONS (2)
  - Dizziness [Unknown]
  - Bedridden [Unknown]
